FAERS Safety Report 8812151 (Version 2)
Quarter: 2014Q3

REPORT INFORMATION
  Report Type: Report from Study
  Country: US (occurrence: US)
  Receive Date: 20120927
  Receipt Date: 20140903
  Transmission Date: 20150326
  Serious: Yes (Hospitalization, Other)
  Sender: FDA-Public Use
  Company Number: US-ROCHE-1127794

PATIENT
  Age: 59 Year
  Sex: Male
  Weight: 78.4 kg

DRUGS (4)
  1. AVASTIN [Suspect]
     Active Substance: BEVACIZUMAB
     Indication: BONE CANCER
     Route: 065
  2. AVASTIN [Suspect]
     Active Substance: BEVACIZUMAB
     Indication: BONE CANCER
     Route: 065
     Dates: start: 20081020
  3. AVASTIN [Suspect]
     Active Substance: BEVACIZUMAB
     Indication: PROSTATE CANCER
     Route: 065
     Dates: start: 200808, end: 20081002
  4. CYCLOPHOSPHAMIDE. [Concomitant]
     Active Substance: CYCLOPHOSPHAMIDE
     Route: 065
     Dates: start: 200810

REACTIONS (9)
  - Pyrexia [Unknown]
  - Pneumonia [Unknown]
  - Anaemia [Unknown]
  - Off label use [Unknown]
  - Pancytopenia [Unknown]
  - Disease progression [Unknown]
  - Back pain [Unknown]
  - Metastasis [Unknown]
  - Pain [Unknown]

NARRATIVE: CASE EVENT DATE: 20081020
